FAERS Safety Report 9538399 (Version 2)
Quarter: 2013Q4

REPORT INFORMATION
  Report Type: Spontaneous
  Country: US (occurrence: US)
  Receive Date: 20130920
  Receipt Date: 20131219
  Transmission Date: 20140711
  Serious: No
  Sender: FDA-Public Use
  Company Number: US-PFIZER INC-2013268034

PATIENT
  Age: 68 Year
  Sex: Female

DRUGS (4)
  1. XANAX [Suspect]
     Indication: ANXIETY
     Dosage: 0.25 MG, 1X/DAY (QD)
     Route: 048
     Dates: end: 201306
  2. JANTOVEN [Interacting]
     Indication: THROMBOSIS PROPHYLAXIS
     Dosage: 25 MG, WEEKLY (2.5 MG TABLETS ON SU, T, TH, SA AND 5 MG TABLETS ON M, W, F)
     Route: 048
     Dates: start: 20130213, end: 2013
  3. JANTOVEN [Interacting]
     Indication: THROMBOSIS
  4. PERCOCET [Concomitant]
     Dosage: UNK

REACTIONS (3)
  - International normalised ratio decreased [Unknown]
  - Drug interaction [Unknown]
  - Alopecia [Not Recovered/Not Resolved]
